FAERS Safety Report 19766400 (Version 1)
Quarter: 2021Q3

REPORT INFORMATION
  Report Type: Spontaneous
  Country: US (occurrence: US)
  Receive Date: 20210830
  Receipt Date: 20210830
  Transmission Date: 20211014
  Serious: Yes (Other)
  Sender: FDA-Public Use
  Company Number: US-ELI_LILLY_AND_COMPANY-US202108008827

PATIENT
  Age: 52 Year
  Sex: Female

DRUGS (1)
  1. TRULICITY [Suspect]
     Active Substance: DULAGLUTIDE
     Indication: PRODUCT USED FOR UNKNOWN INDICATION
     Dosage: 1.5 MG, UNKNOWN
     Route: 065
     Dates: start: 20210817

REACTIONS (7)
  - Confusional state [Unknown]
  - Hypersomnia [Unknown]
  - Hyperhidrosis [Unknown]
  - Seizure [Unknown]
  - Fatigue [Unknown]
  - Memory impairment [Unknown]
  - Nausea [Unknown]

NARRATIVE: CASE EVENT DATE: 202108
